FAERS Safety Report 10034961 (Version 1)
Quarter: 2014Q1

REPORT INFORMATION
  Report Type: Spontaneous
  Country: US (occurrence: None)
  Receive Date: 20140321
  Receipt Date: 20140321
  Transmission Date: 20141002
  Serious: Yes (Other)
  Sender: FDA-Public Use
  Company Number: 2243158

PATIENT
  Age: 29 Year
  Sex: Male
  Weight: 79.55 kg

DRUGS (4)
  1. DEMEROL (MEPERIDINE HCL INJ, USP) CII (PETHIDINE HYDROCHLORIDE) [Suspect]
     Indication: PAIN
     Dosage: 25 MG MILLIGRAM(S) (UNKNOWN) INTRAVENOUS (NOT OTHERWISE SPECIFIED)
     Route: 042
     Dates: start: 20140226, end: 20140226
  2. VERSED [Concomitant]
  3. OFIRMEV [Concomitant]
  4. PERCOCET /00446701/ [Concomitant]

REACTIONS (2)
  - Erythema [None]
  - Urticaria [None]
